FAERS Safety Report 6920724-1 (Version None)
Quarter: 2010Q3

REPORT INFORMATION
  Report Type: 
  Country: None (occurrence: None)
  Receive Date: 20100812
  Receipt Date: 20100728
  Transmission Date: 20110219
  Serious: Yes (Other)
  Sender: FDA-Public Use
  Company Number: DK-RANBAXY-2010RR-37005

PATIENT
  Sex: Female
  Weight: 71 kg

DRUGS (2)
  1. SIMVASTATIN [Suspect]
     Indication: BLOOD CHOLESTEROL INCREASED
     Dosage: 20 MG, QD
     Dates: start: 20010101
  2. TRISEKVENS [Suspect]
     Indication: PREMATURE MENOPAUSE
     Dosage: UNK
     Route: 048
     Dates: start: 19750714

REACTIONS (2)
  - DRUG INTERACTION [None]
  - ERYTHEMA MULTIFORME [None]
